FAERS Safety Report 23277781 (Version 1)
Quarter: 2023Q4

REPORT INFORMATION
  Report Type: Spontaneous
  Country: US (occurrence: US)
  Receive Date: 20231208
  Receipt Date: 20231208
  Transmission Date: 20240110
  Serious: No
  Sender: FDA-Public Use
  Company Number: US-BIOVITRUM-2023-US-019555

PATIENT
  Age: 63 Year
  Sex: Male

DRUGS (1)
  1. PALIFERMIN [Suspect]
     Active Substance: PALIFERMIN
     Indication: Stomatitis

REACTIONS (3)
  - Rash erythematous [Recovered/Resolved]
  - Rash pruritic [Recovered/Resolved]
  - Oedema [Recovered/Resolved]
